FAERS Safety Report 5123385-X (Version None)
Quarter: 2006Q4

REPORT INFORMATION
  Report Type: 
  Country: None (occurrence: None)
  Receive Date: 20061009
  Receipt Date: 20060727
  Transmission Date: 20070319
  Serious: Yes (Hospitalization)
  Sender: FDA-Public Use
  Company Number: US-GILEAD-2006-0009962

PATIENT
  Sex: Female

DRUGS (3)
  1. VIREAD [Suspect]
     Indication: HIV INFECTION
  2. IBUPROFEN [Suspect]
     Indication: BACK PAIN
  3. ANTI-DIABETICS [Suspect]
     Indication: DIABETES MELLITUS

REACTIONS (9)
  - ANAEMIA [None]
  - ASTHENIA [None]
  - BLOOD CREATININE INCREASED [None]
  - FANCONI SYNDROME ACQUIRED [None]
  - GLYCOSURIA [None]
  - METABOLIC ACIDOSIS [None]
  - NEPHRITIS INTERSTITIAL [None]
  - PAIN IN EXTREMITY [None]
  - RENAL DISORDER [None]
